FAERS Safety Report 23286895 (Version 1)
Quarter: 2023Q4

REPORT INFORMATION
  Report Type: Spontaneous
  Country: FR (occurrence: FR)
  Receive Date: 20231212
  Receipt Date: 20231212
  Transmission Date: 20240110
  Serious: Yes (Hospitalization, Other)
  Sender: FDA-Public Use
  Company Number: None

PATIENT

DRUGS (2)
  1. LAMOTRIGINE [Suspect]
     Active Substance: LAMOTRIGINE
     Indication: Tonic clonic movements
     Dosage: UNK
     Route: 048
     Dates: start: 20230714, end: 20230807
  2. CLOBAZAM [Concomitant]
     Active Substance: CLOBAZAM
     Indication: Tonic clonic movements
     Dosage: 15 MG, QD (5MG MORNING, NOON AND EVENING)
     Route: 048
     Dates: start: 20230708

REACTIONS (1)
  - Drug reaction with eosinophilia and systemic symptoms [Recovering/Resolving]

NARRATIVE: CASE EVENT DATE: 20230807
